FAERS Safety Report 14546728 (Version 2)
Quarter: 2018Q1

REPORT INFORMATION
  Report Type: Spontaneous
  Country: JP (occurrence: JP)
  Receive Date: 20180219
  Receipt Date: 20180323
  Transmission Date: 20180509
  Serious: No
  Sender: FDA-Public Use
  Company Number: JP-ELI_LILLY_AND_COMPANY-JP201802006479AA

PATIENT
  Age: 60 Year
  Sex: Male
  Weight: 48 kg

DRUGS (5)
  1. PANVITAN                           /05664501/ [Concomitant]
     Indication: PROPHYLAXIS
     Dosage: 1 G, DAILY
     Dates: start: 20171219
  2. CARBOPLATIN. [Concomitant]
     Active Substance: CARBOPLATIN
     Indication: LUNG ADENOCARCINOMA RECURRENT
     Dosage: 500 MG, SINGLE
     Route: 041
     Dates: start: 20180124, end: 20180124
  3. ALIMTA [Suspect]
     Active Substance: PEMETREXED DISODIUM
     Indication: LUNG ADENOCARCINOMA RECURRENT
     Dosage: 750 MG, SINGLE
     Route: 041
     Dates: start: 20180124, end: 20180124
  4. MASBLON [Concomitant]
     Indication: PROPHYLAXIS
     Dosage: 1 DF, UNK
     Route: 030
     Dates: start: 20171219
  5. URUSO [Concomitant]
     Dosage: 600 MG, DAILY
     Route: 048
     Dates: start: 20171228, end: 20180214

REACTIONS (1)
  - Liver disorder [Recovering/Resolving]

NARRATIVE: CASE EVENT DATE: 20180201
